FAERS Safety Report 8580347-8 (Version None)
Quarter: 2012Q3

REPORT INFORMATION
  Report Type: 
  Country: None (occurrence: None)
  Receive Date: 20120808
  Receipt Date: 20120731
  Transmission Date: 20120928
  Serious: Yes (Other)
  Sender: FDA-Public Use
  Company Number: BR-GILEAD-2012-0059112

PATIENT
  Age: 24 Year
  Sex: Female

DRUGS (7)
  1. SAQUINAVIR [Concomitant]
  2. RITONAVIR [Concomitant]
  3. COMBIVIR [Concomitant]
  4. EMTRICITABINE [Suspect]
     Indication: HIV INFECTION
  5. LOPINAVIR [Concomitant]
  6. TENOFOVIR DISOPROXIL FUMARATE [Suspect]
     Indication: HIV INFECTION
  7. DARUNAVIR ETHANOLATE [Concomitant]

REACTIONS (2)
  - PREGNANCY [None]
  - PSYCHOTIC DISORDER [None]
